FAERS Safety Report 21095118 (Version 1)
Quarter: 2022Q3

REPORT INFORMATION
  Report Type: Spontaneous
  Country: US (occurrence: US)
  Receive Date: 20220718
  Receipt Date: 20220718
  Transmission Date: 20221026
  Serious: Yes (Other)
  Sender: FDA-Public Use
  Company Number: US-BRISTOL-MYERS SQUIBB COMPANY-2022-059341

PATIENT
  Age: 50 Year
  Sex: Male

DRUGS (1)
  1. LENALIDOMIDE [Suspect]
     Active Substance: LENALIDOMIDE
     Indication: Product used for unknown indication
     Dosage: 3 CAPSULES 5MG UNIT DOSE DAILY FOR 28 DAYS
     Route: 048
     Dates: start: 20130715

REACTIONS (1)
  - COVID-19 [Recovering/Resolving]
